FAERS Safety Report 14350564 (Version 1)
Quarter: 2018Q1

REPORT INFORMATION
  Report Type: Spontaneous
  Country: US (occurrence: US)
  Receive Date: 20180104
  Receipt Date: 20180104
  Transmission Date: 20180509
  Serious: No
  Sender: FDA-Public Use
  Company Number: US-PFIZER INC-2018001722

PATIENT
  Age: 77 Year
  Sex: Male

DRUGS (2)
  1. SUTENT [Suspect]
     Active Substance: SUNITINIB MALATE
     Dosage: 50 MG, CYCLIC(ONE CAPSULE BY MOUTH FOR 14 DAYS AND THEN OFF FOR 7 DAYS)
     Route: 048
  2. SUTENT [Suspect]
     Active Substance: SUNITINIB MALATE
     Indication: LIVER DISORDER
     Dosage: 50 MG, CYCLIC (ONE CAPSULE BY MOUTH DAILY FOR 28 DAYS AND THEN HOLD FOR 14 DAYS)
     Route: 048
     Dates: start: 201711

REACTIONS (3)
  - White blood cell count decreased [Unknown]
  - Platelet count decreased [Recovered/Resolved]
  - Red blood cell count decreased [Unknown]

NARRATIVE: CASE EVENT DATE: 201712
